FAERS Safety Report 22350340 (Version 2)
Quarter: 2023Q4

REPORT INFORMATION
  Report Type: Spontaneous
  Country: DE (occurrence: DE)
  Receive Date: 20230522
  Receipt Date: 20231207
  Transmission Date: 20240110
  Serious: Yes (Hospitalization)
  Sender: FDA-Public Use
  Company Number: DE-ROCHE-3347607

PATIENT
  Age: 18 Year
  Sex: Male

DRUGS (9)
  1. ETOPOSIDE [Suspect]
     Active Substance: ETOPOSIDE
     Indication: Diffuse large B-cell lymphoma
     Dosage: 180 MG, QD (1X/DAY (D1, D2, D3) PER CYCLE)
     Route: 042
     Dates: start: 20230422, end: 20230424
  2. RITUXIMAB [Suspect]
     Active Substance: RITUXIMAB
     Indication: Diffuse large B-cell lymphoma
     Dosage: 650 MG
     Route: 042
     Dates: start: 20230421, end: 20230422
  3. CARBOPLATIN [Suspect]
     Active Substance: CARBOPLATIN
     Indication: Diffuse large B-cell lymphoma
     Dosage: 800 MG
     Route: 042
     Dates: start: 20230422, end: 20230422
  4. IFOSFAMIDE [Suspect]
     Active Substance: IFOSFAMIDE
     Indication: Diffuse large B-cell lymphoma
     Dosage: 8640 MG
     Route: 042
     Dates: start: 20230423, end: 20230424
  5. POLATUZUMAB VEDOTIN [Suspect]
     Active Substance: POLATUZUMAB VEDOTIN
     Indication: Diffuse large B-cell lymphoma
     Dosage: 110 MG
     Route: 042
     Dates: start: 20230422, end: 20230422
  6. ENOXAPARIN [Concomitant]
     Active Substance: ENOXAPARIN
     Indication: Superior vena cava occlusion
     Dosage: 80 MG
     Route: 065
     Dates: start: 202212
  7. LACTULOSE [Concomitant]
     Active Substance: LACTULOSE
     Indication: Constipation
     Dosage: 3.3 GMS/5 ML
     Route: 065
     Dates: start: 2018
  8. SUMATRIPTAN [Concomitant]
     Active Substance: SUMATRIPTAN
     Indication: Migraine
     Dosage: 50 MG
     Route: 065
     Dates: start: 201909
  9. ALBUTEROL [Concomitant]
     Active Substance: ALBUTEROL
     Indication: Product used for unknown indication
     Dosage: 100 UG
     Route: 065
     Dates: start: 2009

REACTIONS (1)
  - COVID-19 [Recovered/Resolved]

NARRATIVE: CASE EVENT DATE: 20230507
